FAERS Safety Report 7184357-7 (Version None)
Quarter: 2010Q4

REPORT INFORMATION
  Report Type: 
  Country: None (occurrence: None)
  Receive Date: 20101222
  Receipt Date: 20091125
  Transmission Date: 20110411
  Serious: No
  Sender: FDA-Public Use
  Company Number: US-PFIZER INC-2009304514

PATIENT
  Sex: Female

DRUGS (3)
  1. DIFLUCAN [Suspect]
     Dosage: 200 MG, 1X/DAY
  2. PENICILLIN G PROCAINE [Suspect]
     Indication: INFECTION
     Dosage: UNK
     Route: 042
     Dates: start: 19960101
  3. METRONIDAZOLE [Suspect]
     Indication: INFECTION

REACTIONS (2)
  - ARTHRITIS [None]
  - DRUG INEFFECTIVE [None]
